FAERS Safety Report 7721087-4 (Version None)
Quarter: 2011Q3

REPORT INFORMATION
  Report Type: 
  Country: None (occurrence: None)
  Receive Date: 20110825
  Receipt Date: 20110812
  Transmission Date: 20111222
  Serious: Yes (Other)
  Sender: FDA-Public Use
  Company Number: GER/UKI/11/0020693

PATIENT
  Age: 44 Year
  Sex: Male
  Weight: 55 kg

DRUGS (5)
  1. LOMOTIL [Concomitant]
  2. CODEINE [Concomitant]
  3. FLUOXETINE [Suspect]
     Indication: DEPRESSION
     Dosage: 20 MG, ORAL
     Route: 048
     Dates: start: 20110706
  4. BACLOFEN [Concomitant]
  5. INSULIN GLARGINE [Concomitant]

REACTIONS (2)
  - DYSPEPSIA [None]
  - CHEST PAIN [None]
